FAERS Safety Report 5430035-1 (Version None)
Quarter: 2007Q3

REPORT INFORMATION
  Report Type: 
  Country: None (occurrence: None)
  Receive Date: 20070829
  Receipt Date: 20070814
  Transmission Date: 20080115
  Serious: Yes (Hospitalization)
  Sender: FDA-Public Use
  Company Number: GB-GENENTECH-246547

PATIENT
  Weight: 74.104 kg

DRUGS (4)
  1. BEVACIZUMAB [Suspect]
     Indication: COLORECTAL CANCER
     Dosage: UNK, UNKNOWN
     Route: 065
     Dates: start: 20070725
  2. FLUOROURACIL [Concomitant]
     Indication: COLORECTAL CANCER
  3. OXALIPLATIN [Concomitant]
     Indication: COLORECTAL CANCER
     Dosage: UNK, UNKNOWN
     Route: 065
  4. FOLINIC ACID [Concomitant]
     Indication: COLORECTAL CANCER
     Dosage: UNK, UNKNOWN
     Route: 065

REACTIONS (1)
  - PYREXIA [None]
